FAERS Safety Report 9700270 (Version 2)
Quarter: 2013Q4

REPORT INFORMATION
  Report Type: Spontaneous
  Country: US (occurrence: US)
  Receive Date: 20131121
  Receipt Date: 20131216
  Transmission Date: 20140711
  Serious: Yes (Other)
  Sender: FDA-Public Use
  Company Number: US-JNJFOC-20131107973

PATIENT
  Sex: Female
  Weight: 54.43 kg

DRUGS (7)
  1. DURAGESIC [Suspect]
     Indication: ARTHRITIS
     Route: 062
     Dates: start: 2013
  2. DURAGESIC [Suspect]
     Indication: PAIN
     Route: 062
     Dates: start: 2013
  3. CRESTOR [Concomitant]
     Indication: CARDIAC DISORDER
     Route: 065
  4. VICODIN [Concomitant]
     Route: 065
  5. CYMBALTA [Concomitant]
     Route: 065
  6. ASPIRIN [Concomitant]
     Indication: CARDIAC DISORDER
     Route: 065
  7. LABETALOL [Concomitant]
     Indication: CARDIAC DISORDER
     Route: 065

REACTIONS (6)
  - Arrhythmia [Not Recovered/Not Resolved]
  - Pain [Not Recovered/Not Resolved]
  - Gait disturbance [Not Recovered/Not Resolved]
  - Product quality issue [Unknown]
  - Drug dose omission [Not Recovered/Not Resolved]
  - Product quality issue [Unknown]
